FAERS Safety Report 21734855 (Version 1)
Quarter: 2022Q4

REPORT INFORMATION
  Report Type: Report from Study
  Country: DE (occurrence: DE)
  Receive Date: 20221215
  Receipt Date: 20221215
  Transmission Date: 20230112
  Serious: Yes (Hospitalization)
  Sender: FDA-Public Use
  Company Number: DE-JNJFOC-20221217081

PATIENT
  Age: 5 Decade
  Sex: Female

DRUGS (20)
  1. STELARA [Suspect]
     Active Substance: USTEKINUMAB
     Indication: Psoriatic arthropathy
     Route: 058
     Dates: start: 20211223, end: 20211223
  2. SIMPONI [Suspect]
     Active Substance: GOLIMUMAB
     Indication: Psoriatic arthropathy
     Route: 058
     Dates: start: 20220209, end: 20220309
  3. INFLIXIMAB [Suspect]
     Active Substance: INFLIXIMAB
     Indication: Psoriatic arthropathy
     Dates: start: 20220106, end: 20220309
  4. RINVOQ [Suspect]
     Active Substance: UPADACITINIB
     Indication: Psoriatic arthropathy
     Dates: start: 20211029, end: 20220105
  5. RINVOQ [Suspect]
     Active Substance: UPADACITINIB
     Dates: start: 20220209, end: 20220421
  6. ETORICOXIB [Suspect]
     Active Substance: ETORICOXIB
     Indication: Psoriatic arthropathy
     Dates: start: 20211214, end: 20220218
  7. ETORICOXIB [Suspect]
     Active Substance: ETORICOXIB
     Dates: start: 20220227
  8. TRIAMCINOLONE [Suspect]
     Active Substance: TRIAMCINOLONE
  9. DEXAMETHASONE PALMITATE [Suspect]
     Active Substance: DEXAMETHASONE PALMITATE
  10. BUPIVACAINE HYDROCHLORIDE [Suspect]
     Active Substance: BUPIVACAINE HYDROCHLORIDE
  11. GADOLINIUM [Suspect]
     Active Substance: GADOLINIUM
  12. TREMFYA [Concomitant]
     Active Substance: GUSELKUMAB
     Route: 065
     Dates: start: 20220309
  13. NAPROXEN [Concomitant]
     Active Substance: NAPROXEN
     Dates: start: 20220219, end: 20220226
  14. CALCIUM\CHOLECALCIFEROL [Concomitant]
     Active Substance: CALCIUM\CHOLECALCIFEROL
  15. PREDNISOLONE [Concomitant]
     Active Substance: PREDNISOLONE
  16. PREDNISOLONE [Concomitant]
     Active Substance: PREDNISOLONE
  17. PANTOPRAZOLE [Concomitant]
     Active Substance: PANTOPRAZOLE
  18. PREDNISONE [Concomitant]
     Active Substance: PREDNISONE
  19. BISOPROLOL [Concomitant]
     Active Substance: BISOPROLOL
  20. RUPATADINE [Concomitant]
     Active Substance: RUPATADINE

REACTIONS (4)
  - Hypersensitivity [Recovered/Resolved]
  - Drug hypersensitivity [Recovered/Resolved]
  - Arthralgia [Recovered/Resolved]
  - Psoriatic arthropathy [Recovered/Resolved]

NARRATIVE: CASE EVENT DATE: 20220112
